FAERS Safety Report 10111325 (Version 1)
Quarter: 2014Q2

REPORT INFORMATION
  Report Type: Report from Study
  Country: NZ (occurrence: NZ)
  Receive Date: 20140425
  Receipt Date: 20140425
  Transmission Date: 20141212
  Serious: Yes (Hospitalization)
  Sender: FDA-Public Use
  Company Number: PHHY2014NZ049915

PATIENT
  Sex: Female

DRUGS (2)
  1. CLOZARIL [Suspect]
     Dosage: UNK
     Dates: start: 20030715, end: 20140227
  2. CLOZARIL [Suspect]
     Dosage: 12.5 MG
     Dates: start: 20140306

REACTIONS (3)
  - Mental impairment [Unknown]
  - Intestinal obstruction [Unknown]
  - Faecaloma [Unknown]
